FAERS Safety Report 8267305-8 (Version None)
Quarter: 2012Q2

REPORT INFORMATION
  Report Type: 
  Country: None (occurrence: None)
  Receive Date: 20120409
  Receipt Date: 20120330
  Transmission Date: 20120825
  Serious: Yes (Other)
  Sender: FDA-Public Use
  Company Number: JP-ASTELLAS-2012JP002850

PATIENT
  Age: 71 Year
  Sex: Female

DRUGS (3)
  1. RHEUMATREX [Concomitant]
     Route: 065
  2. PREDNISOLONE [Concomitant]
     Dosage: 5 MG, UNKNOWN/D
     Route: 048
     Dates: start: 20080101
  3. PROGRAF [Suspect]
     Indication: RHEUMATOID ARTHRITIS
     Dosage: 1 MG, UNKNOWN/D
     Route: 048
     Dates: start: 20120101

REACTIONS (1)
  - INTRAOCULAR PRESSURE INCREASED [None]
